FAERS Safety Report 5290406-3 (Version None)
Quarter: 2007Q2

REPORT INFORMATION
  Report Type: 
  Country: None (occurrence: None)
  Receive Date: 20070409
  Receipt Date: 20070402
  Transmission Date: 20071010
  Serious: Yes (Hospitalization, Other)
  Sender: FDA-Public Use
  Company Number: FR-BRISTOL-MYERS SQUIBB COMPANY-13740048

PATIENT
  Age: 54 Year
  Sex: Female

DRUGS (7)
  1. REYATAZ [Suspect]
     Indication: ACQUIRED IMMUNODEFICIENCY SYNDROME
     Route: 048
  2. FENOFIBRATE [Suspect]
  3. NORVIR [Suspect]
     Indication: ACQUIRED IMMUNODEFICIENCY SYNDROME
  4. TRUVADA [Suspect]
     Indication: ACQUIRED IMMUNODEFICIENCY SYNDROME
  5. METFORMIN EMBONATE [Concomitant]
  6. PIOGLITAZONE HCL [Concomitant]
  7. LOSARTAN POTASSIUM + HCTZ [Concomitant]

REACTIONS (4)
  - BLOOD AMYLASE INCREASED [None]
  - LIPASE INCREASED [None]
  - PANCREATITIS [None]
  - RENAL FAILURE ACUTE [None]
